FAERS Safety Report 6870005-X (Version None)
Quarter: 2010Q3

REPORT INFORMATION
  Report Type: 
  Country: None (occurrence: None)
  Receive Date: 20100722
  Receipt Date: 20100712
  Transmission Date: 20110219
  Serious: Yes (Other)
  Sender: FDA-Public Use
  Company Number: BR-PFIZER INC-2010072929

PATIENT
  Age: 53 Year
  Sex: Male
  Weight: 80 kg

DRUGS (4)
  1. CHAMPIX [Suspect]
     Indication: TOBACCO USER
     Dosage: UNK
     Route: 048
     Dates: start: 20100501, end: 20100101
  2. CHAMPIX [Suspect]
     Dosage: 0.5 MG, 2X/DAY (EVERY 12 HOURS)
     Route: 048
     Dates: start: 20100101, end: 20100101
  3. CHAMPIX [Suspect]
     Dosage: 1 MG, 2X/DAY
     Route: 048
     Dates: start: 20100101, end: 20100601
  4. OMEPRAZOLE [Concomitant]
     Dosage: UNK
     Dates: start: 20090924

REACTIONS (2)
  - FLUID INTAKE REDUCED [None]
  - GASTRIC DISORDER [None]
